FAERS Safety Report 21354526 (Version 1)
Quarter: 2022Q3

REPORT INFORMATION
  Report Type: Spontaneous
  Country: NL (occurrence: None)
  Receive Date: 20220920
  Receipt Date: 20220920
  Transmission Date: 20221027
  Serious: Yes (Hospitalization)
  Sender: FDA-Public Use
  Company Number: None

PATIENT
  Sex: Female
  Weight: 75.5 kg

DRUGS (6)
  1. RITUXIMAB [Suspect]
     Active Substance: RITUXIMAB
     Indication: Mantle cell lymphoma
     Dosage: 1X PER DAG 700 MG TOEDIENEN IN 4-5 UUR
     Route: 065
     Dates: start: 20220908, end: 20220908
  2. ACETAMINOPHEN [Concomitant]
     Active Substance: ACETAMINOPHEN
     Dosage: TABLET, 500 MG (MILLIGRAM)
  3. DOXORUBICIN [Concomitant]
     Active Substance: DOXORUBICIN
     Dosage: OPLOSSING VOOR INFUUS, 2 MG/ML (MILLIGRAM PER MILLILITER)
  4. VINCRISTINE [Concomitant]
     Active Substance: VINCRISTINE
     Dosage: INJECTIEVLOEISTOF, 1 MG/ML (MILLIGRAM PER MILLILITER)
  5. ATORVASTATIN [Concomitant]
     Active Substance: ATORVASTATIN
     Dosage: KAUWTABLET, 10 MG (MILLIGRAM)
  6. CYCLOPHOSPHAMIDE [Concomitant]
     Active Substance: CYCLOPHOSPHAMIDE
     Dosage: POEDER INJECTIEVLOEISTOF, 500 MG (MILLIGRAM)

REACTIONS (5)
  - Dyspnoea [Recovered/Resolved]
  - Hypersensitivity [Recovered/Resolved]
  - Diarrhoea [Recovered/Resolved]
  - Pyrexia [Recovered/Resolved]
  - Chills [Recovered/Resolved]
